FAERS Safety Report 10083460 (Version 1)
Quarter: 2014Q2

REPORT INFORMATION
  Report Type: Spontaneous
  Country: TW (occurrence: TW)
  Receive Date: 20140417
  Receipt Date: 20140417
  Transmission Date: 20141212
  Serious: Yes (Other)
  Sender: FDA-Public Use
  Company Number: TW-BAYER-2014-053040

PATIENT
  Sex: Female

DRUGS (6)
  1. YASMIN [Suspect]
     Indication: CONTRACEPTION
     Route: 048
  2. ALPRAZOLAM [Concomitant]
  3. INDERAL [Concomitant]
  4. ESCITALOPRAM [Concomitant]
  5. LORAZEPAM [Concomitant]
  6. FLUNARIZINE [Concomitant]
     Dosage: UNK
     Dates: start: 201401

REACTIONS (4)
  - Abortion spontaneous [Recovering/Resolving]
  - Pregnancy on oral contraceptive [Recovered/Resolved]
  - Abdominal pain [Recovering/Resolving]
  - Drug ineffective [None]
